FAERS Safety Report 23684201 (Version 4)
Quarter: 2025Q1

REPORT INFORMATION
  Report Type: Spontaneous
  Country: FR (occurrence: FR)
  Receive Date: 20240328
  Receipt Date: 20250219
  Transmission Date: 20250408
  Serious: Yes (Hospitalization, Disabling, Other)
  Sender: MYLAN
  Company Number: FR-SA-SAC20240228000046

PATIENT
  Age: 40 Year
  Sex: Female

DRUGS (30)
  1. LEVETIRACETAM [Suspect]
     Active Substance: LEVETIRACETAM
     Indication: Product used for unknown indication
     Route: 048
     Dates: start: 20211125
  2. NOMEGESTROL ACETATE [Suspect]
     Active Substance: NOMEGESTROL ACETATE
     Indication: Heavy menstrual bleeding
     Route: 065
     Dates: start: 20200925
  3. NOMEGESTROL ACETATE [Suspect]
     Active Substance: NOMEGESTROL ACETATE
     Indication: Intermenstrual bleeding
     Route: 065
     Dates: start: 20151221
  4. NOMEGESTROL ACETATE [Suspect]
     Active Substance: NOMEGESTROL ACETATE
     Route: 048
     Dates: start: 20190806
  5. NOMEGESTROL ACETATE [Suspect]
     Active Substance: NOMEGESTROL ACETATE
     Route: 048
     Dates: start: 20180215
  6. NOMEGESTROL ACETATE [Suspect]
     Active Substance: NOMEGESTROL ACETATE
     Route: 048
     Dates: start: 20210630
  7. NOMEGESTROL ACETATE [Suspect]
     Active Substance: NOMEGESTROL ACETATE
     Route: 065
     Dates: start: 20120810
  8. NOMEGESTROL ACETATE [Suspect]
     Active Substance: NOMEGESTROL ACETATE
     Route: 048
     Dates: start: 20121108
  9. NOMEGESTROL ACETATE [Suspect]
     Active Substance: NOMEGESTROL ACETATE
     Route: 065
     Dates: start: 20210624
  10. NOMEGESTROL ACETATE [Suspect]
     Active Substance: NOMEGESTROL ACETATE
     Route: 065
     Dates: start: 20201017
  11. NOMEGESTROL ACETATE [Suspect]
     Active Substance: NOMEGESTROL ACETATE
     Route: 065
     Dates: start: 20210113
  12. NOMEGESTROL ACETATE [Suspect]
     Active Substance: NOMEGESTROL ACETATE
     Route: 065
     Dates: start: 20141112
  13. NOMEGESTROL ACETATE [Suspect]
     Active Substance: NOMEGESTROL ACETATE
     Route: 048
     Dates: start: 20190711
  14. NOMEGESTROL ACETATE [Suspect]
     Active Substance: NOMEGESTROL ACETATE
     Route: 065
     Dates: start: 20130105
  15. NOMEGESTROL ACETATE [Suspect]
     Active Substance: NOMEGESTROL ACETATE
     Route: 048
     Dates: start: 20190318
  16. NOMEGESTROL ACETATE [Suspect]
     Active Substance: NOMEGESTROL ACETATE
     Route: 048
     Dates: start: 20190411
  17. NOMEGESTROL ACETATE [Suspect]
     Active Substance: NOMEGESTROL ACETATE
     Route: 048
     Dates: start: 20190516
  18. PROMEGESTONE [Suspect]
     Active Substance: PROMEGESTONE
     Indication: Product used for unknown indication
     Route: 065
  19. PROMEGESTONE [Suspect]
     Active Substance: PROMEGESTONE
     Route: 065
     Dates: start: 20190221
  20. PROMEGESTONE [Suspect]
     Active Substance: PROMEGESTONE
     Route: 065
     Dates: start: 201911
  21. PROMEGESTONE [Suspect]
     Active Substance: PROMEGESTONE
     Route: 065
     Dates: start: 20210409
  22. CHLORMADINONE ACETATE [Suspect]
     Active Substance: CHLORMADINONE ACETATE
     Indication: Intermenstrual bleeding
     Route: 048
     Dates: start: 20101101
  23. CHLORMADINONE ACETATE [Suspect]
     Active Substance: CHLORMADINONE ACETATE
     Dosage: 1 DOSAGE FORM, QD AFTERNOON
     Route: 048
  24. KEPPRA [Concomitant]
     Active Substance: LEVETIRACETAM
     Dosage: 2 DOSAGE FORM, QD
     Route: 065
  25. KEPPRA [Concomitant]
     Active Substance: LEVETIRACETAM
     Dosage: 1 DOSAGE FORM, BID, 1 DF, BID (1 TABLET, MORNING, EVENING, ORAL ROUTE, FOR 1 MONTH, REPEAT 2 TIMES)
     Route: 048
  26. PROGESTERONE [Concomitant]
     Active Substance: PROGESTERONE
     Route: 065
  27. ACETAMINOPHEN [Concomitant]
     Active Substance: ACETAMINOPHEN
     Indication: Pain
     Dosage: 1 DOSAGE FORM, Q6H
     Route: 065
  28. PROMESTRIENE [Concomitant]
     Active Substance: PROMESTRIENE
     Route: 065
  29. POLYETHYLENE GLYCOL 4000 [Concomitant]
     Active Substance: POLYETHYLENE GLYCOL 4000
     Route: 065
  30. DOLIPRANE [Concomitant]
     Active Substance: ACETAMINOPHEN
     Route: 065

REACTIONS (24)
  - Meningioma benign [Recovered/Resolved with Sequelae]
  - Brain oedema [Unknown]
  - Loss of personal independence in daily activities [Unknown]
  - Meningioma [Unknown]
  - Uterine leiomyoma [Unknown]
  - Disturbance in attention [Unknown]
  - Fatigue [Unknown]
  - Aphasia [Unknown]
  - Language disorder [Unknown]
  - Feeling abnormal [Unknown]
  - Central nervous system lesion [Unknown]
  - Malaise [Unknown]
  - Cerebral disorder [Unknown]
  - Illiteracy [Unknown]
  - Meningioma surgery [Unknown]
  - Neck pain [Unknown]
  - Speech disorder [Unknown]
  - Executive dysfunction [Recovered/Resolved]
  - Reading disorder [Recovered/Resolved]
  - Ovarian cyst [Unknown]
  - Infectious mononucleosis [Unknown]
  - Emotional disorder [Not Recovered/Not Resolved]
  - Headache [Not Recovered/Not Resolved]
  - Asthenia [Unknown]

NARRATIVE: CASE EVENT DATE: 20120112
